FAERS Safety Report 9058075 (Version 2)
Quarter: 2013Q1

REPORT INFORMATION
  Report Type: Spontaneous
  Country: US (occurrence: US)
  Receive Date: 20130211
  Receipt Date: 20130225
  Transmission Date: 20140127
  Serious: No
  Sender: FDA-Public Use
  Company Number: US-BIOGENIDEC-2013BI009629

PATIENT
  Age: 66 None
  Sex: Female

DRUGS (1)
  1. TYSABRI [Suspect]
     Indication: MULTIPLE SCLEROSIS
     Route: 042
     Dates: start: 20130107

REACTIONS (3)
  - Poor venous access [Recovered/Resolved]
  - Contusion [Recovered/Resolved]
  - Blood pressure abnormal [Not Recovered/Not Resolved]
